FAERS Safety Report 18606480 (Version 1)
Quarter: 2020Q4

REPORT INFORMATION
  Report Type: Spontaneous
  Country: US (occurrence: US)
  Receive Date: 20201211
  Receipt Date: 20201211
  Transmission Date: 20210114
  Serious: No
  Sender: FDA-Public Use
  Company Number: US-PFIZER INC-2020487581

PATIENT
  Age: 67 Year
  Sex: Female
  Weight: 69.4 kg

DRUGS (1)
  1. ESTRING [Suspect]
     Active Substance: ESTRADIOL
     Indication: ATROPHIC VULVOVAGINITIS
     Dosage: 1 DF, EVERY 3 MONTHS(ONE RING EVERY THREE MONTHS INSERTED VAGINALLY)
     Route: 067

REACTIONS (3)
  - Drug hypersensitivity [Unknown]
  - Vaginal discharge [Unknown]
  - Vulvovaginal erythema [Unknown]
